FAERS Safety Report 16641983 (Version 1)
Quarter: 2019Q3

REPORT INFORMATION
  Report Type: Spontaneous
  Country: AR (occurrence: AR)
  Receive Date: 20190729
  Receipt Date: 20190729
  Transmission Date: 20191004
  Serious: Yes (Other)
  Sender: FDA-Public Use
  Company Number: PHHY2019AR171685

PATIENT
  Sex: Female

DRUGS (1)
  1. ILARIS [Suspect]
     Active Substance: CANAKINUMAB
     Indication: STILL^S DISEASE
     Dosage: 300 MONTHLY/150 ML WEEKLY
     Route: 065

REACTIONS (4)
  - Speech disorder [Unknown]
  - Suicidal ideation [Unknown]
  - Gait inability [Unknown]
  - Malaise [Unknown]
